FAERS Safety Report 7593976-5 (Version None)
Quarter: 2011Q3

REPORT INFORMATION
  Report Type: 
  Country: None (occurrence: None)
  Receive Date: 20110706
  Receipt Date: 20110622
  Transmission Date: 20111222
  Serious: Yes (Other)
  Sender: FDA-Public Use
  Company Number: GB-MYLANLABS-2011S1013162

PATIENT
  Age: 44 Year
  Sex: Male

DRUGS (7)
  1. DIAZEPAM [Suspect]
     Indication: PRODUCT USED FOR UNKNOWN INDICATION
  2. NEFOPAM [Suspect]
     Indication: PRODUCT USED FOR UNKNOWN INDICATION
  3. ALCOHOL [Concomitant]
     Indication: PRODUCT USED FOR UNKNOWN INDICATION
  4. VITAMIN B [Concomitant]
     Indication: PRODUCT USED FOR UNKNOWN INDICATION
  5. LIBRIUM [Concomitant]
     Indication: ALCOHOL DETOXIFICATION
  6. DIHYDROCODEINE BITARTRATE INJ [Suspect]
     Indication: PRODUCT USED FOR UNKNOWN INDICATION
  7. CLOZAPINE [Suspect]
     Indication: SCHIZOPHRENIA
     Dates: start: 20001027, end: 20011228

REACTIONS (6)
  - OVERDOSE [None]
  - WEIGHT DECREASED [None]
  - DIZZINESS [None]
  - NEOPLASM MALIGNANT [None]
  - CIRCULATORY COLLAPSE [None]
  - HYPOTENSION [None]
